FAERS Safety Report 5671640-7 (Version None)
Quarter: 2008Q1

REPORT INFORMATION
  Report Type: 
  Country: None (occurrence: None)
  Receive Date: 20080313
  Receipt Date: 20080307
  Transmission Date: 20080703
  Serious: Yes (Other)
  Sender: FDA-Public Use
  Company Number: 2008SP003829

PATIENT
  Age: 62 Year
  Sex: Male
  Weight: 85 kg

DRUGS (3)
  1. TEMODAL [Suspect]
     Indication: GLIOBLASTOMA
     Dosage: 75 MG/M2; ;PO, 200 MG/M2; ;PO, 200 MG/M2; ;PO
     Route: 048
     Dates: start: 20071029, end: 20071213
  2. TEMODAL [Suspect]
     Indication: GLIOBLASTOMA
     Dosage: 75 MG/M2; ;PO, 200 MG/M2; ;PO, 200 MG/M2; ;PO
     Route: 048
     Dates: end: 20080220
  3. TEMODAL [Suspect]
     Indication: GLIOBLASTOMA
     Dosage: 75 MG/M2; ;PO, 200 MG/M2; ;PO, 200 MG/M2; ;PO
     Route: 048
     Dates: start: 20080119

REACTIONS (7)
  - BLOOD ALKALINE PHOSPHATASE INCREASED [None]
  - BLOOD AMYLASE INCREASED [None]
  - BLOOD LACTATE DEHYDROGENASE INCREASED [None]
  - GAMMA-GLUTAMYLTRANSFERASE INCREASED [None]
  - LIPASE INCREASED [None]
  - NEOPLASM PROSTATE [None]
  - OSTEITIS DEFORMANS [None]
